FAERS Safety Report 4398565-1 (Version None)
Quarter: 2004Q3

REPORT INFORMATION
  Report Type: 
  Country: None (occurrence: None)
  Receive Date: 20040714
  Receipt Date: 20040714
  Transmission Date: 20050211
  Serious: Yes (Hospitalization)
  Sender: FDA-Public Use
  Company Number: None

PATIENT
  Age: 44 Year
  Sex: Male
  Weight: 76.2043 kg

DRUGS (12)
  1. CISPLATIN [Suspect]
     Indication: LARYNGEAL CANCER
     Dosage: 200 MG IV Q 3 WKS X 3 DOSES
     Route: 042
     Dates: start: 20040510
  2. CISPLATIN [Suspect]
     Indication: LARYNGEAL CANCER
     Dosage: 200 MG IV Q 3 WKS X 3 DOSES
     Route: 042
     Dates: start: 20040607
  3. CISPLATIN [Suspect]
     Indication: LARYNGEAL CANCER
     Dosage: 200 MG IV Q 3 WKS X 3 DOSES
     Route: 042
     Dates: start: 20040624
  4. PULMICORT [Concomitant]
  5. LORTAB [Concomitant]
  6. ALBUTEROL [Concomitant]
  7. CLONIDINE HCL [Concomitant]
  8. REGLAN [Concomitant]
  9. DECADRON [Concomitant]
  10. MIRACLE MOUTHWASH [Concomitant]
  11. PHENERGAN [Concomitant]
  12. ZOFRAN [Concomitant]

REACTIONS (3)
  - DEHYDRATION [None]
  - DIARRHOEA [None]
  - VOMITING [None]
